FAERS Safety Report 15145514 (Version 1)
Quarter: 2018Q3

REPORT INFORMATION
  Report Type: Spontaneous
  Country: US (occurrence: US)
  Receive Date: 20180713
  Receipt Date: 20180713
  Transmission Date: 20181010
  Serious: Yes (Other)
  Sender: FDA-Public Use
  Company Number: US-FDC LIMITED-2018RIS00306

PATIENT
  Age: 29 Year
  Sex: Female

DRUGS (1)
  1. OFLOXACIN. [Suspect]
     Active Substance: OFLOXACIN

REACTIONS (4)
  - Skin burning sensation [Unknown]
  - Skin irritation [Unknown]
  - Ulcerative keratitis [Unknown]
  - Discomfort [Unknown]
